FAERS Safety Report 25473837 (Version 1)
Quarter: 2025Q2

REPORT INFORMATION
  Report Type: Spontaneous
  Country: US (occurrence: US)
  Receive Date: 20250624
  Receipt Date: 20250624
  Transmission Date: 20250717
  Serious: No
  Sender: INSUD PHARMA
  Company Number: US-INSUD PHARMA-2506US04769

PATIENT

DRUGS (1)
  1. SLYND [Suspect]
     Active Substance: DROSPIRENONE
     Indication: Postpartum anxiety
     Route: 048
     Dates: start: 20250607

REACTIONS (5)
  - Abdominal pain [Unknown]
  - Flatulence [Unknown]
  - Constipation [Unknown]
  - Maternal exposure during breast feeding [Unknown]
  - Product prescribing issue [Unknown]

NARRATIVE: CASE EVENT DATE: 20250601
